FAERS Safety Report 6142451-3 (Version None)
Quarter: 2009Q2

REPORT INFORMATION
  Report Type: 
  Country: None (occurrence: None)
  Receive Date: 20090403
  Receipt Date: 20071116
  Transmission Date: 20091009
  Serious: Yes (Other)
  Sender: FDA-Public Use
  Company Number: US-ASTRAZENECA-2006UW10172

PATIENT
  Age: 126 Month
  Sex: Female
  Weight: 63 kg

DRUGS (10)
  1. SEROQUEL [Suspect]
     Indication: AFFECTIVE DISORDER
     Dosage: 25 MG- 200 MG
     Route: 048
     Dates: start: 20040330, end: 20060417
  2. SEROQUEL [Suspect]
     Indication: BIPOLAR DISORDER
     Dosage: 25 MG- 200 MG
     Route: 048
     Dates: start: 20040330, end: 20060417
  3. RISPERDAL [Concomitant]
  4. TOPAMAX [Concomitant]
  5. PROZAC [Concomitant]
  6. METHYLPHENIDATE HCL [Concomitant]
  7. LUNESTA [Concomitant]
  8. EFFEXOR [Concomitant]
  9. AMBIEN [Concomitant]
  10. TRILEPTAL [Concomitant]

REACTIONS (11)
  - AFFECT LABILITY [None]
  - ANAEMIA [None]
  - ANOREXIA [None]
  - DEPRESSION [None]
  - DIABETES MELLITUS [None]
  - FATIGUE [None]
  - MALAISE [None]
  - SKIN PAPILLOMA [None]
  - SLEEP DISORDER [None]
  - SUICIDAL IDEATION [None]
  - WEIGHT DECREASED [None]
